FAERS Safety Report 6732613-6 (Version None)
Quarter: 2010Q2

REPORT INFORMATION
  Report Type: 
  Country: None (occurrence: None)
  Receive Date: 20100519
  Receipt Date: 20100510
  Transmission Date: 20101027
  Serious: Yes (Other)
  Sender: FDA-Public Use
  Company Number: CA-JNJFOC-20100503252

PATIENT
  Age: 3 Year
  Sex: Female
  Weight: 11.79 kg

DRUGS (6)
  1. CONCENTRATED MOTRIN INFANTS DROPS [Suspect]
     Indication: PYREXIA
     Route: 048
  2. CONCENTRATED MOTRIN INFANTS DROPS [Suspect]
     Indication: EAR INFECTION
     Route: 048
  3. CHILDREN'S MOTRIN [Suspect]
     Route: 048
  4. CHILDREN'S MOTRIN [Suspect]
     Indication: URINARY TRACT INFECTION
     Route: 048
  5. CHILDREN'S TYLENOL SUSPENSION [Suspect]
     Route: 048
  6. CHILDREN'S TYLENOL SUSPENSION [Suspect]
     Indication: EAR INFECTION
     Route: 048

REACTIONS (4)
  - ENTEROCOCCAL INFECTION [None]
  - PRODUCT QUALITY ISSUE [None]
  - TRANSMISSION OF AN INFECTIOUS AGENT VIA A MEDICINAL PRODUCT [None]
  - URINARY TRACT INFECTION [None]
